FAERS Safety Report 21041046 (Version 1)
Quarter: 2022Q3

REPORT INFORMATION
  Report Type: Report from Study
  Country: IT (occurrence: IT)
  Receive Date: 20220704
  Receipt Date: 20220704
  Transmission Date: 20221027
  Serious: Yes (Hospitalization, Other)
  Sender: FDA-Public Use
  Company Number: IT-SUN PHARMACEUTICAL INDUSTRIES LTD-2022R1-342920

PATIENT

DRUGS (3)
  1. RISPERIDONE [Interacting]
     Active Substance: RISPERIDONE
     Indication: Schizoaffective disorder
     Dosage: 6 MG
     Route: 065
  2. CLOZAPINE [Interacting]
     Active Substance: CLOZAPINE
     Indication: Product used for unknown indication
     Dosage: 200 MG
     Route: 065
  3. LITHIUM CARBONATE [Concomitant]
     Active Substance: LITHIUM CARBONATE
     Indication: Product used for unknown indication
     Dosage: 750 MG
     Route: 065

REACTIONS (2)
  - Dystonia [Unknown]
  - Drug interaction [Unknown]
